FAERS Safety Report 9924364 (Version 1)
Quarter: 2014Q1

REPORT INFORMATION
  Report Type: Spontaneous
  Country: US (occurrence: None)
  Receive Date: 20140220
  Receipt Date: 20140220
  Transmission Date: 20141002
  Serious: Yes (Other)
  Sender: FDA-Public Use
  Company Number: ADR-2014-00260

PATIENT
  Age: 61 Year
  Sex: Female

DRUGS (2)
  1. BACLOFEN [Suspect]
     Indication: PAIN
  2. DILAUDID (HYDROMORPHONE) [Suspect]

REACTIONS (3)
  - Fall [None]
  - Back injury [None]
  - Device malfunction [None]
